FAERS Safety Report 7591785-4 (Version None)
Quarter: 2011Q3

REPORT INFORMATION
  Report Type: 
  Country: None (occurrence: None)
  Receive Date: 20110701
  Receipt Date: 20110701
  Transmission Date: 20111222
  Serious: Yes (Life-Threatening, Other)
  Sender: FDA-Public Use
  Company Number: None

PATIENT
  Sex: Male
  Weight: 79.5 kg

DRUGS (2)
  1. SIMVASTATIN [Suspect]
     Indication: BLOOD CHOLESTEROL INCREASED
     Dosage: 80MG DAILY PO (FOUR YEARS AT 40MG; THREE MONTHS AT 80MG)
     Route: 048
     Dates: start: 20060101, end: 20110310
  2. SIMVASTATIN [Suspect]
     Indication: BLOOD CHOLESTEROL INCREASED
     Dosage: 80MG DAILY PO (FOUR YEARS AT 40MG; THREE MONTHS AT 80MG)
     Route: 048
     Dates: start: 20110310, end: 20110603

REACTIONS (1)
  - HALLUCINATION, AUDITORY [None]
